FAERS Safety Report 5383933-1 (Version None)
Quarter: 2007Q3

REPORT INFORMATION
  Report Type: 
  Country: None (occurrence: None)
  Receive Date: 20070711
  Receipt Date: 20070710
  Transmission Date: 20080115
  Serious: Yes (Other)
  Sender: FDA-Public Use
  Company Number: FR-RB-007289-07

PATIENT
  Age: 39 Year
  Sex: Female

DRUGS (2)
  1. SUBUTEX [Suspect]
     Indication: DRUG USE FOR UNKNOWN INDICATION
     Route: 065
  2. BUPRENORPHINE ARROW [Suspect]
     Indication: DRUG USE FOR UNKNOWN INDICATION
     Dosage: DOSAGE AND FREQUNECY UNKNOWN
     Route: 065

REACTIONS (2)
  - ANXIETY [None]
  - DRUG WITHDRAWAL SYNDROME [None]
